FAERS Safety Report 8309781-8 (Version None)
Quarter: 2012Q2

REPORT INFORMATION
  Report Type: 
  Country: None (occurrence: None)
  Receive Date: 20120425
  Receipt Date: 20120420
  Transmission Date: 20120825
  Serious: Yes (Disabling)
  Sender: FDA-Public Use
  Company Number: PHEH2012US008585

PATIENT
  Sex: Female
  Weight: 57.596 kg

DRUGS (6)
  1. METOPROLOL TARTRATE [Concomitant]
  2. MULTAQ [Concomitant]
  3. ATORVASTATIN [Concomitant]
  4. RECLAST [Suspect]
     Indication: OSTEOPOROSIS
     Dosage: 5 MG / 100 ML (1 X)
     Route: 042
     Dates: start: 20120417
  5. DABIGATRAN ETEXILATE [Concomitant]
  6. ASPIRIN [Concomitant]

REACTIONS (1)
  - DEAFNESS [None]
